FAERS Safety Report 7392942-2 (Version None)
Quarter: 2011Q1

REPORT INFORMATION
  Report Type: 
  Country: None (occurrence: None)
  Receive Date: 20110330
  Receipt Date: 20110330
  Transmission Date: 20110831
  Serious: Yes (Death, Life-Threatening, Hospitalization)
  Sender: FDA-Public Use
  Company Number: None

PATIENT
  Age: 74 Year
  Sex: Female
  Weight: 126.6 kg

DRUGS (1)
  1. PRADAXA [Suspect]
     Indication: ATRIAL FIBRILLATION
     Dosage: 150MG TWICE DAILY SQ
     Route: 058
     Dates: start: 20110301, end: 20110326

REACTIONS (9)
  - HAEMATOCHEZIA [None]
  - TACHYCARDIA [None]
  - DEPRESSED LEVEL OF CONSCIOUSNESS [None]
  - DYSPNOEA [None]
  - EPISTAXIS [None]
  - HYPOTENSION [None]
  - VOMITING [None]
  - ACUTE RESPIRATORY FAILURE [None]
  - ASPIRATION [None]
